FAERS Safety Report 5096889-6 (Version None)
Quarter: 2006Q3

REPORT INFORMATION
  Report Type: 
  Country: None (occurrence: None)
  Receive Date: 20060901
  Receipt Date: 20060901
  Transmission Date: 20061208
  Serious: Yes (Hospitalization)
  Sender: FDA-Public Use
  Company Number: None

PATIENT
  Age: 46 Year
  Sex: Female

DRUGS (2)
  1. TRIPHASIL-21 [Suspect]
     Indication: CONTRACEPTION
     Dosage: 1 TABLET  DAILY  PO  YEARS
     Route: 048
  2. LEVOTHYROXINE SODIUM [Concomitant]

REACTIONS (1)
  - RENAL VEIN THROMBOSIS [None]
